FAERS Safety Report 9260092 (Version 2)
Quarter: 2013Q4

REPORT INFORMATION
  Report Type: Spontaneous
  Country: FR (occurrence: FR)
  Receive Date: 20130429
  Receipt Date: 20131129
  Transmission Date: 20140711
  Serious: Yes (Other)
  Sender: FDA-Public Use
  Company Number: FR-JNJFOC-20130409758

PATIENT
  Age: 62 Year
  Sex: Female

DRUGS (11)
  1. REMICADE [Suspect]
     Indication: PSORIATIC ARTHROPATHY
     Route: 042
     Dates: start: 20121214
  2. REMICADE [Suspect]
     Indication: PSORIATIC ARTHROPATHY
     Route: 042
     Dates: start: 20130402
  3. REMICADE [Suspect]
     Indication: PSORIATIC ARTHROPATHY
     Route: 042
     Dates: start: 20130208
  4. REMICADE [Suspect]
     Indication: PSORIATIC ARTHROPATHY
     Route: 042
     Dates: start: 20130107
  5. DIPROSONE [Concomitant]
     Route: 065
     Dates: start: 201207
  6. DIPROSONE [Concomitant]
     Route: 065
     Dates: start: 20121214
  7. CLOBEX [Concomitant]
     Route: 065
     Dates: start: 201207
  8. SIMVASTATINE [Concomitant]
     Indication: DYSLIPIDAEMIA
     Route: 065
  9. METFORMIN [Concomitant]
     Indication: TYPE 2 DIABETES MELLITUS
     Route: 065
  10. PRETERAX [Concomitant]
     Indication: HYPERTENSION
     Route: 065
  11. OMEPRAZOLE [Concomitant]
     Route: 065

REACTIONS (12)
  - Myocardial ischaemia [Recovered/Resolved]
  - Blood pressure decreased [Recovered/Resolved]
  - Infusion related reaction [Recovered/Resolved]
  - Vertigo [Recovered/Resolved]
  - Hot flush [Recovered/Resolved]
  - Vomiting [Recovered/Resolved]
  - Chest pain [Recovered/Resolved]
  - Electrocardiogram T wave inversion [Recovered/Resolved]
  - Nausea [Recovered/Resolved]
  - Headache [Recovered/Resolved]
  - Tachycardia [Recovered/Resolved]
  - Erythema [Recovered/Resolved]
